FAERS Safety Report 13855136 (Version 6)
Quarter: 2018Q2

REPORT INFORMATION
  Report Type: Spontaneous
  Country: US (occurrence: US)
  Receive Date: 20170810
  Receipt Date: 20180420
  Transmission Date: 20180711
  Serious: Yes (Other)
  Sender: FDA-Public Use
  Company Number: US-CELGENEUS-USA-20170802397

PATIENT
  Age: 84 Year
  Sex: Female

DRUGS (9)
  1. TOFACITINIB CITRATE XR [Concomitant]
     Indication: PRODUCT USED FOR UNKNOWN INDICATION
     Route: 065
  2. OTEZLA [Suspect]
     Active Substance: APREMILAST
     Indication: OFF LABEL USE
  3. GOLIMUMAB [Concomitant]
     Active Substance: GOLIMUMAB
     Indication: PRODUCT USED FOR UNKNOWN INDICATION
     Route: 065
     Dates: start: 20160620
  4. CERTOLIZUMAB PEGOL [Concomitant]
     Active Substance: CERTOLIZUMAB PEGOL
     Indication: PRODUCT USED FOR UNKNOWN INDICATION
     Route: 065
     Dates: start: 20160620
  5. ENBREL [Suspect]
     Active Substance: ETANERCEPT
     Indication: RHEUMATOID ARTHRITIS
     Dosage: 10 MILLIGRAM
     Route: 048
  6. TOFACITINIB CITRATE [Concomitant]
     Active Substance: TOFACITINIB CITRATE
     Indication: PRODUCT USED FOR UNKNOWN INDICATION
     Route: 065
  7. OTEZLA [Suspect]
     Active Substance: APREMILAST
     Indication: RHEUMATOID ARTHRITIS
     Route: 048
  8. PREDNISONE. [Concomitant]
     Active Substance: PREDNISONE
     Indication: PRODUCT USED FOR UNKNOWN INDICATION
     Route: 065
  9. SULFASALAZINE. [Concomitant]
     Active Substance: SULFASALAZINE
     Indication: PRODUCT USED FOR UNKNOWN INDICATION
     Route: 065

REACTIONS (11)
  - Urinary tract infection [Unknown]
  - Vomiting [Unknown]
  - Rash [Unknown]
  - Nausea [Unknown]
  - Rheumatoid arthritis [Not Recovered/Not Resolved]
  - Blood creatinine increased [Unknown]
  - Weight decreased [Unknown]
  - Drug hypersensitivity [Unknown]
  - Herpes zoster [Unknown]
  - Blood pressure increased [Unknown]
  - Diarrhoea [Unknown]

NARRATIVE: CASE EVENT DATE: 20170619
